FAERS Safety Report 7475470-5 (Version None)
Quarter: 2011Q2

REPORT INFORMATION
  Report Type: 
  Country: None (occurrence: None)
  Receive Date: 20110512
  Receipt Date: 20110505
  Transmission Date: 20111010
  Serious: Yes (Other)
  Sender: FDA-Public Use
  Company Number: PHHY2011BR38198

PATIENT
  Sex: Male

DRUGS (1)
  1. NATEGLINIDE [Suspect]
     Dosage: 120MG/850MG 84

REACTIONS (1)
  - CATARACT [None]
